FAERS Safety Report 24967481 (Version 1)
Quarter: 2025Q1

REPORT INFORMATION
  Report Type: Spontaneous
  Country: DE (occurrence: DE)
  Receive Date: 20250214
  Receipt Date: 20250214
  Transmission Date: 20250408
  Serious: No
  Sender: ALKEM
  Company Number: DE-ALKEM LABORATORIES LIMITED-DE-ALKEM-2024-23502

PATIENT
  Age: 49 Year
  Sex: Female
  Weight: 72 kg

DRUGS (21)
  1. FINGOLIMOD [Suspect]
     Active Substance: FINGOLIMOD
     Indication: Relapsing-remitting multiple sclerosis
     Route: 048
     Dates: start: 20200414, end: 20240927
  2. BACLOFEN [Concomitant]
     Active Substance: BACLOFEN
     Indication: Muscle spasticity
     Dosage: 10 MILLIGRAMS, BID
     Route: 048
     Dates: start: 20190225
  3. HERBALS [Concomitant]
     Active Substance: HERBALS
     Indication: Cough
     Route: 048
     Dates: start: 20231108, end: 20231126
  4. CANDESARTAN [Concomitant]
     Active Substance: CANDESARTAN
     Indication: Blood pressure increased
     Route: 048
  5. CEFUROXIME AXETIL [Concomitant]
     Active Substance: CEFUROXIME AXETIL
     Indication: Wound infection
     Dosage: 500 MILLIGRAM, BID
     Route: 048
     Dates: start: 20230401, end: 20230405
  6. CLINDAMYCIN [Concomitant]
     Active Substance: CLINDAMYCIN
     Indication: Pulpitis dental
     Route: 048
     Dates: start: 20221120, end: 20221202
  7. Comirnaty [Concomitant]
     Indication: COVID-19
     Route: 030
     Dates: start: 20210520, end: 20210520
  8. Comirnaty [Concomitant]
     Indication: Prophylaxis
     Route: 030
  9. Comirnaty [Concomitant]
     Route: 030
     Dates: start: 20210701, end: 20210701
  10. DOXEPIN [Concomitant]
     Active Substance: DOXEPIN
     Indication: Sleep disorder
     Dosage: 10 MILLIGRAMS, EVERY 1 DAY
     Route: 048
  11. FLUOXETINE HYDROCHLORIDE [Concomitant]
     Active Substance: FLUOXETINE HYDROCHLORIDE
     Indication: Depression
     Route: 048
     Dates: start: 20190829
  12. IBUPROFEN [Concomitant]
     Active Substance: IBUPROFEN
     Indication: Pain
     Route: 048
     Dates: start: 20231108, end: 20231126
  13. IBUPROFEN [Concomitant]
     Active Substance: IBUPROFEN
     Route: 048
  14. IBUPROFEN [Concomitant]
     Active Substance: IBUPROFEN
     Indication: Pain
     Route: 048
     Dates: start: 20231108, end: 20231126
  15. PROMETHAZINE [Concomitant]
     Active Substance: PROMETHAZINE HYDROCHLORIDE
     Indication: Sleep disorder
     Route: 048
  16. NABIXIMOLS [Concomitant]
     Active Substance: NABIXIMOLS
     Indication: Muscle spasticity
     Route: 048
  17. LEVOTHYROXINE [Concomitant]
     Active Substance: LEVOTHYROXINE
     Indication: Hypothyroidism
     Route: 048
  18. VENLAFAXINE HYDROCHLORIDE [Concomitant]
     Active Substance: VENLAFAXINE HYDROCHLORIDE
     Indication: Depression
     Dosage: 150 MILLIGRAMS, EVERY 1 DAY
     Route: 048
     Dates: start: 20200604, end: 20221206
  19. VENLAFAXINE HYDROCHLORIDE [Concomitant]
     Active Substance: VENLAFAXINE HYDROCHLORIDE
     Dosage: 75 MILLIGRAM, EVERY 1 DAY
     Route: 048
     Dates: start: 20200507
  20. VENLAFAXINE HYDROCHLORIDE [Concomitant]
     Active Substance: VENLAFAXINE HYDROCHLORIDE
     Dosage: 37.5 MILLIGRAMS, EVERY 1 DAY
     Route: 048
     Dates: start: 20220809, end: 20221206
  21. ZOPICLONE [Concomitant]
     Active Substance: ZOPICLONE
     Indication: Prophylaxis
     Route: 048
     Dates: start: 20240118

REACTIONS (3)
  - Neutrophil count increased [Recovered/Resolved]
  - White blood cell count increased [Recovered/Resolved]
  - Lymphopenia [Not Recovered/Not Resolved]

NARRATIVE: CASE EVENT DATE: 20240927
